FAERS Safety Report 10585071 (Version 2)
Quarter: 2015Q1

REPORT INFORMATION
  Report Type: Spontaneous
  Country: CA (occurrence: CA)
  Receive Date: 20141114
  Receipt Date: 20150111
  Transmission Date: 20150720
  Serious: Yes (Hospitalization, Other)
  Sender: FDA-Public Use
  Company Number: CA-AMGEN-CANSP2014088418

PATIENT
  Sex: Female

DRUGS (1)
  1. PROLIA [Suspect]
     Active Substance: DENOSUMAB
     Indication: PRODUCT USED FOR UNKNOWN INDICATION
     Dosage: UNK
     Route: 065
     Dates: start: 20140813

REACTIONS (21)
  - Hypersensitivity [Unknown]
  - Dysuria [Unknown]
  - Pruritus [Unknown]
  - Pain in extremity [Unknown]
  - Renal failure [Unknown]
  - Pain in jaw [Unknown]
  - Fluid retention [Unknown]
  - Hypocalcaemia [Unknown]
  - Hypertension [Unknown]
  - Abdominal pain [Unknown]
  - Confusional state [Unknown]
  - Dizziness [Unknown]
  - Dysphagia [Unknown]
  - Swelling face [Unknown]
  - Musculoskeletal pain [Unknown]
  - Constipation [Unknown]
  - Hospitalisation [Unknown]
  - Cardiac failure [Unknown]
  - Blood magnesium decreased [Unknown]
  - Abdominal distension [Unknown]
  - Gait disturbance [Unknown]
